FAERS Safety Report 7345183-9 (Version None)
Quarter: 2011Q1

REPORT INFORMATION
  Report Type: 
  Country: None (occurrence: None)
  Receive Date: 20110310
  Receipt Date: 20110307
  Transmission Date: 20110831
  Serious: Yes (Other)
  Sender: FDA-Public Use
  Company Number: GB-ABBOTT-10P-167-0668046-00

PATIENT
  Sex: Female

DRUGS (8)
  1. TRAMADOL [Concomitant]
     Indication: PAIN
     Route: 048
     Dates: start: 20070101
  2. QUININE [Concomitant]
     Indication: MUSCLE SPASMS
     Dosage: NOCTE, 1 DAY 1
     Route: 048
     Dates: start: 20070101
  3. TIBALONE [Concomitant]
     Indication: PRODUCT USED FOR UNKNOWN INDICATION
     Route: 048
     Dates: start: 20070101
  4. FUROSEMIDE [Concomitant]
     Indication: HYPERTENSION
     Route: 048
     Dates: start: 20070101
  5. HUMIRA [Suspect]
     Indication: PSORIASIS
     Route: 058
     Dates: start: 20100630, end: 20100825
  6. AMLODIPINE [Concomitant]
     Indication: HYPERTENSION
     Route: 048
     Dates: start: 20070101
  7. OMEPRAZOLE [Concomitant]
     Indication: DYSPEPSIA
     Route: 048
     Dates: start: 20070101
  8. VALSARTAN [Concomitant]
     Indication: HYPERTENSION
     Route: 048
     Dates: start: 20070101

REACTIONS (4)
  - EYELID PTOSIS [None]
  - ECTROPION [None]
  - SKIN EXFOLIATION [None]
  - ECZEMA [None]
